FAERS Safety Report 15812207 (Version 1)
Quarter: 2019Q1

REPORT INFORMATION
  Report Type: Spontaneous
  Country: US (occurrence: US)
  Receive Date: 20190111
  Receipt Date: 20190111
  Transmission Date: 20190417
  Serious: Yes (Death, Other)
  Sender: FDA-Public Use
  Company Number: US-PFIZER INC-2019012471

PATIENT
  Age: 91 Year
  Sex: Female

DRUGS (1)
  1. THROMBIN [Suspect]
     Active Substance: THROMBIN
     Indication: HAEMOSTASIS
     Dosage: UNK

REACTIONS (4)
  - Respiratory failure [Fatal]
  - Prothrombin time prolonged [Unknown]
  - Thrombin time prolonged [Unknown]
  - Activated partial thromboplastin time prolonged [Unknown]
